FAERS Safety Report 22612438 (Version 1)
Quarter: 2023Q2

REPORT INFORMATION
  Report Type: Spontaneous
  Country: US (occurrence: US)
  Receive Date: 20230617
  Receipt Date: 20230617
  Transmission Date: 20230722
  Serious: Yes (Life-Threatening, Other)
  Sender: FDA-Public Use
  Company Number: US-RISINGPHARMA-US-2023RISSPO00091

PATIENT
  Sex: Female

DRUGS (12)
  1. VERAPAMIL HYDROCHLORIDE [Suspect]
     Active Substance: VERAPAMIL HYDROCHLORIDE
     Indication: Torsade de pointes
     Route: 065
  2. MEXILETINE [Suspect]
     Active Substance: MEXILETINE
     Indication: Torsade de pointes
     Route: 065
  3. MEXILETINE [Suspect]
     Active Substance: MEXILETINE
     Dosage: MEXILETINE WAS SLOWLY WEANED OFF
     Route: 065
  4. PHENYTOIN [Concomitant]
     Active Substance: PHENYTOIN
     Indication: Torsade de pointes
     Route: 048
  5. PHENYTOIN [Concomitant]
     Active Substance: PHENYTOIN
     Route: 048
  6. DILTIAZEM [Concomitant]
     Active Substance: DILTIAZEM
     Indication: Torsade de pointes
     Route: 065
  7. ISOPROTERENOL HYDROCHLORIDE [Concomitant]
     Active Substance: ISOPROTERENOL HYDROCHLORIDE
     Indication: Torsade de pointes
     Route: 065
  8. MAGNESIUM [Concomitant]
     Active Substance: MAGNESIUM
     Indication: Torsade de pointes
     Route: 065
  9. PROPRANOLOL [Concomitant]
     Active Substance: PROPRANOLOL HYDROCHLORIDE
     Indication: Torsade de pointes
     Route: 065
  10. PROPRANOLOL [Concomitant]
     Active Substance: PROPRANOLOL HYDROCHLORIDE
     Dosage: SHE WAS CONTINUED ON PROPRANOLOL
     Route: 065
  11. FLECAINIDE [Concomitant]
     Active Substance: FLECAINIDE
     Indication: Torsade de pointes
     Route: 065
  12. RANOLAZINE [Concomitant]
     Active Substance: RANOLAZINE
     Indication: Torsade de pointes
     Route: 065

REACTIONS (1)
  - Arrhythmic storm [Unknown]
